FAERS Safety Report 19589172 (Version 4)
Quarter: 2021Q3

REPORT INFORMATION
  Report Type: Report from Study
  Country: None (occurrence: GR)
  Receive Date: 20210721
  Receipt Date: 20210827
  Transmission Date: 20211014
  Serious: Yes (Hospitalization, Other)
  Sender: FDA-Public Use
  Company Number: GR-ABBVIE-21K-066-3976844-00

PATIENT
  Sex: Male
  Weight: 70 kg

DRUGS (5)
  1. MIRAPEXIN [Concomitant]
     Active Substance: PRAMIPEXOLE
     Indication: PARKINSON^S DISEASE
     Route: 048
  2. BRINTELLIX [Concomitant]
     Active Substance: VORTIOXETINE HYDROBROMIDE
     Indication: PRODUCT USED FOR UNKNOWN INDICATION
     Dosage: 1 , 1 (IN THE MORNING)
     Route: 048
  3. FILICINE [Concomitant]
     Active Substance: FOLIC ACID
     Indication: PRODUCT USED FOR UNKNOWN INDICATION
     Route: 048
  4. DUODOPA [Suspect]
     Active Substance: CARBIDOPA\LEVODOPA
     Indication: PARKINSON^S DISEASE
     Dosage: MORNING DOSE: 9.0 ML; CONTINUOUS RATE: 3.8 ML/H; EXTRA DOSE: 1.7 ML
     Route: 050
     Dates: start: 20210316, end: 2021
  5. DUODOPA [Suspect]
     Active Substance: CARBIDOPA\LEVODOPA
     Dosage: MORNING DOSE: 9.3 ML; CONTINUOUS RATE: 4.0 ML/H; EXTRA DOSE: 2.0 ML
     Route: 050
     Dates: start: 2021

REACTIONS (5)
  - Nephrolithiasis [Recovered/Resolved]
  - Pyrexia [Not Recovered/Not Resolved]
  - Cholelithiasis [Recovered/Resolved]
  - White blood cell count decreased [Not Recovered/Not Resolved]
  - Urinary tract infection [Recovered/Resolved]

NARRATIVE: CASE EVENT DATE: 2021
